FAERS Safety Report 20474928 (Version 1)
Quarter: 2022Q1

REPORT INFORMATION
  Report Type: Spontaneous
  Country: US (occurrence: None)
  Receive Date: 20220214
  Receipt Date: 20220214
  Transmission Date: 20220423
  Serious: Yes (Other)
  Sender: FDA-Public Use
  Company Number: None

PATIENT
  Age: 16 Year
  Sex: Male
  Weight: 59.85 kg

DRUGS (3)
  1. .DELTA.8-TETRAHYDROCANNABINOL\HERBALS [Suspect]
     Active Substance: .DELTA.8-TETRAHYDROCANNABINOL\HERBALS
     Indication: Substance use
     Dates: start: 20220212, end: 20220212
  2. LEVOCETIRIZINE [Concomitant]
     Active Substance: LEVOCETIRIZINE
  3. FAMOTIDINE [Concomitant]
     Active Substance: FAMOTIDINE

REACTIONS (8)
  - Sensitive skin [None]
  - Feeling abnormal [None]
  - Hallucination, visual [None]
  - Thinking abnormal [None]
  - Near death experience [None]
  - Paraesthesia [None]
  - Loss of personal independence in daily activities [None]
  - Suspected product contamination [None]

NARRATIVE: CASE EVENT DATE: 20220212
